FAERS Safety Report 4376203-1 (Version None)
Quarter: 2004Q2

REPORT INFORMATION
  Report Type: 
  Country: None (occurrence: None)
  Receive Date: 20040610
  Receipt Date: 20040610
  Transmission Date: 20050107
  Serious: Yes (Hospitalization)
  Sender: FDA-Public Use
  Company Number: None

PATIENT
  Age: 45 Year
  Sex: Female
  Weight: 64.8644 kg

DRUGS (5)
  1. TAXOTERE [Suspect]
     Indication: BREAST CANCER
     Dosage: INTRAVENOUS 64 MG
     Dates: start: 20040513, end: 20040608
  2. XELODA [Suspect]
     Indication: BREAST CANCER
     Dosage: ORAL (2,500 MG/DAY )
     Dates: start: 20040517
  3. INDERAL [Concomitant]
  4. PRILOSEC [Concomitant]
  5. DECADRON [Concomitant]

REACTIONS (2)
  - CELLULITIS [None]
  - POSTOPERATIVE INFECTION [None]
